FAERS Safety Report 25597508 (Version 3)
Quarter: 2025Q3

REPORT INFORMATION
  Report Type: Spontaneous
  Country: US (occurrence: US)
  Receive Date: 20250723
  Receipt Date: 20250918
  Transmission Date: 20251020
  Serious: No
  Sender: ASTELLAS
  Company Number: US-ASTELLAS-2025-AER-032414

PATIENT
  Age: 52 Year
  Sex: Female

DRUGS (2)
  1. VEOZAH [Suspect]
     Active Substance: FEZOLINETANT
     Indication: Menopausal symptoms
     Dosage: TAKING DIFFERENT TIME WITH FOOD
     Route: 048
  2. VEOZAH [Suspect]
     Active Substance: FEZOLINETANT
     Dosage: AT EVENING TIME (1 NIGHTLY)
     Route: 048
     Dates: start: 20230823

REACTIONS (2)
  - Abdominal pain [Recovered/Resolved]
  - Diarrhoea [Recovered/Resolved]

NARRATIVE: CASE EVENT DATE: 20230823
